FAERS Safety Report 6691723-2 (Version None)
Quarter: 2010Q2

REPORT INFORMATION
  Report Type: 
  Country: None (occurrence: None)
  Receive Date: 20100422
  Receipt Date: 20100113
  Transmission Date: 20101027
  Serious: Yes (Hospitalization)
  Sender: FDA-Public Use
  Company Number: US-ASTRAZENECA-2010SE01544

PATIENT
  Age: 25430 Day
  Sex: Male
  Weight: 83.6 kg

DRUGS (5)
  1. TOPROL-XL [Suspect]
     Indication: HYPERTENSION
     Route: 048
     Dates: end: 20091216
  2. BLIND (BI 1744) [Suspect]
     Indication: CHRONIC OBSTRUCTIVE PULMONARY DISEASE
     Dosage: 5 MCG (2 ACTUATIONS OF 2.5 MCG)  AND 10 MCG (2 ACTUATIONS OF 5 MCG) DAILY
     Route: 055
     Dates: start: 20090311
  3. ENALAPRIL [Suspect]
     Indication: HYPERTENSION
     Route: 048
  4. CRESTOR [Concomitant]
     Indication: HYPERLIPIDAEMIA
     Route: 048
     Dates: start: 20090901
  5. ASPIRIN [Concomitant]
     Indication: MYOCARDIAL INFARCTION
     Route: 048

REACTIONS (3)
  - BRADYCARDIA [None]
  - DYSPNOEA [None]
  - HYPOTENSION [None]
